FAERS Safety Report 13986935 (Version 7)
Quarter: 2017Q4

REPORT INFORMATION
  Report Type: Spontaneous
  Country: CA (occurrence: CA)
  Receive Date: 20170919
  Receipt Date: 20171128
  Transmission Date: 20180321
  Serious: Yes (Hospitalization, Other)
  Sender: FDA-Public Use
  Company Number: CA-CELLTRION INC.-2017CA009474

PATIENT

DRUGS (27)
  1. ACETAMINOPHEN. [Concomitant]
     Active Substance: ACETAMINOPHEN
     Dosage: 975 MG, TID
     Route: 048
  2. NABILONE [Concomitant]
     Active Substance: NABILONE
     Dosage: 1 MG, BID
     Route: 048
  3. LOPERAMIDE [Concomitant]
     Active Substance: LOPERAMIDE
     Dosage: 2 MG, UNK
     Route: 048
  4. HYDROMORPHONE [Concomitant]
     Active Substance: HYDROMORPHONE
     Dosage: 4 MG, TID
     Route: 048
  5. TYLENOL [Concomitant]
     Active Substance: ACETAMINOPHEN
     Dosage: UNK
     Route: 065
  6. HYOSCINE [Concomitant]
     Active Substance: SCOPOLAMINE
     Dosage: 10 MG, UNK
     Route: 048
  7. PANTOPRAZOLE [Concomitant]
     Active Substance: PANTOPRAZOLE
     Dosage: 40 MG, DAILY
     Route: 048
  8. HUMIRA [Concomitant]
     Active Substance: ADALIMUMAB
     Dosage: 40 MG, CYCLIC EVERY 2 WEEKS
     Route: 058
     Dates: start: 201702
  9. DOMPERIDONE [Concomitant]
     Active Substance: DOMPERIDONE
     Dosage: 10 MG, TID
     Route: 048
  10. FOLIC ACID. [Concomitant]
     Active Substance: FOLIC ACID
     Dosage: 1 MG, 1X/DAY
     Route: 048
  11. GRAVOL [Concomitant]
     Active Substance: DIMENHYDRINATE
     Dosage: UNK
     Route: 065
  12. INFLECTRA [Suspect]
     Active Substance: INFLIXIMAB-DYYB
     Dosage: 5 MG/KG, THEN EVERY 8 WEEKS
     Route: 042
     Dates: end: 20170809
  13. AMITRIPTYLINE                      /00002202/ [Concomitant]
     Active Substance: AMITRIPTYLINE
     Dosage: 20 MG, DAILY
     Route: 048
  14. CETIRIZINE [Concomitant]
     Active Substance: CETIRIZINE HYDROCHLORIDE
     Dosage: 20 MG, DAILY
     Route: 048
  15. INFLECTRA [Suspect]
     Active Substance: INFLIXIMAB-DYYB
     Indication: COLITIS ULCERATIVE
     Dosage: 498 MG, Q 0, 2, 6 WEEKS,  THEN EVERY 8 WEEKS
     Route: 042
     Dates: start: 20170627
  16. DIMENHYDRINATE. [Concomitant]
     Active Substance: DIMENHYDRINATE
     Dosage: 100 MG, TID
     Route: 048
  17. MARVELON [Concomitant]
     Active Substance: DESOGESTREL\ETHINYL ESTRADIOL
     Dosage: UNK, 1X/DAY
     Route: 048
  18. METHOTREXATE. [Concomitant]
     Active Substance: METHOTREXATE
     Dosage: 25 MG, 1/WEEK
     Route: 030
  19. CLONAZEPAM. [Concomitant]
     Active Substance: CLONAZEPAM
     Dosage: 0.5 MG, BID
     Route: 048
  20. PROPANOLOL                         /00030001/ [Concomitant]
     Active Substance: PROPRANOLOL HYDROCHLORIDE
     Dosage: 10 MG, BID
     Route: 048
  21. ONDANSETRON [Concomitant]
     Active Substance: ONDANSETRON
     Dosage: 8 MG, UNK
     Route: 060
  22. VITAMIN D [Concomitant]
     Active Substance: CHOLECALCIFEROL
     Dosage: 800 IU, DAILY
     Route: 048
  23. RANITIDINE. [Concomitant]
     Active Substance: RANITIDINE
     Dosage: 150 MG, BID
     Route: 048
  24. DIPHENHYDRAMINE. [Concomitant]
     Active Substance: DIPHENHYDRAMINE
     Dosage: 50 MG, BID
     Route: 048
  25. VITAMIN D [Concomitant]
     Active Substance: CHOLECALCIFEROL
     Dosage: 2000 IU, DAILY
     Route: 048
  26. MATERNA                            /02266601/ [Concomitant]
     Active Substance: MINERALS\VITAMINS
     Dosage: UNK, 1X/DAY
     Route: 065
  27. CANNABIS SATIVA [Concomitant]
     Active Substance: CANNABIS SATIVA SUBSP. SATIVA FLOWERING TOP
     Dosage: UNK
     Route: 065

REACTIONS (20)
  - Paralysis [Unknown]
  - Vision blurred [Unknown]
  - Dysstasia [Not Recovered/Not Resolved]
  - Infected skin ulcer [Unknown]
  - Impaired gastric emptying [Unknown]
  - Gait disturbance [Not Recovered/Not Resolved]
  - Haemoglobin decreased [Unknown]
  - Vertigo positional [Unknown]
  - Loss of consciousness [Unknown]
  - Diarrhoea [Unknown]
  - Dizziness [Unknown]
  - Neuralgia [Not Recovered/Not Resolved]
  - Nausea [Unknown]
  - Pruritus [Not Recovered/Not Resolved]
  - Condition aggravated [Unknown]
  - Vomiting [Unknown]
  - Speech disorder [Unknown]
  - Condition aggravated [Not Recovered/Not Resolved]
  - Guillain-Barre syndrome [Unknown]
  - Staphylococcal infection [Unknown]

NARRATIVE: CASE EVENT DATE: 2017
